FAERS Safety Report 5047579-7 (Version None)
Quarter: 2006Q3

REPORT INFORMATION
  Report Type: 
  Country: None (occurrence: None)
  Receive Date: 20060711
  Receipt Date: 20060630
  Transmission Date: 20061208
  Serious: Yes (Other)
  Sender: FDA-Public Use
  Company Number: PHBS2006BR09973

PATIENT
  Age: 42 Year
  Sex: Female
  Weight: 77 kg

DRUGS (1)
  1. LEPONEX [Suspect]
     Indication: SCHIZOPHRENIA
     Dosage: 250 MG/D
     Route: 048
     Dates: start: 20051001

REACTIONS (9)
  - BLOOD PRESSURE DECREASED [None]
  - FALL [None]
  - HEART RATE INCREASED [None]
  - ILLUSION [None]
  - PALPITATIONS [None]
  - SOMNOLENCE [None]
  - SURGERY [None]
  - SYNCOPE [None]
  - WEIGHT DECREASED [None]
